FAERS Safety Report 16687957 (Version 1)
Quarter: 2019Q3

REPORT INFORMATION
  Report Type: Spontaneous
  Country: US (occurrence: US)
  Receive Date: 20190624
  Receipt Date: 20190624
  Transmission Date: 20191004
  Serious: Yes (Disabling, Other)
  Sender: FDA-Public Use
  Company Number: None

PATIENT
  Age: 42 Year
  Sex: Female
  Weight: 56.7 kg

DRUGS (4)
  1. NEURITONIN 300 MG A DAY [Concomitant]
  2. TEGRETOL 200 MG A DAY [Concomitant]
  3. DILANTIN [Suspect]
     Active Substance: PHENYTOIN
     Indication: EPILEPSY
     Route: 048
     Dates: start: 20160903
  4. LOPRESSOR [Concomitant]
     Active Substance: METOPROLOL TARTRATE

REACTIONS (7)
  - Anticonvulsant drug level above therapeutic [None]
  - Toxicity to various agents [None]
  - Fall [None]
  - Paraparesis [None]
  - Hemianaesthesia [None]
  - Gait disturbance [None]
  - Pain [None]

NARRATIVE: CASE EVENT DATE: 20180701
